FAERS Safety Report 4652012-0 (Version None)
Quarter: 2005Q2

REPORT INFORMATION
  Report Type: 
  Country: None (occurrence: None)
  Receive Date: 20050504
  Receipt Date: 20050419
  Transmission Date: 20051028
  Serious: Yes (Hospitalization)
  Sender: FDA-Public Use
  Company Number: US-BOEHRINGER INGELHEIM PHARMACEUTICALS, INC.-2005-DE-01512GD

PATIENT
  Sex: Male

DRUGS (8)
  1. NEVIRAPINE [Suspect]
     Indication: HIV INFECTION
  2. STAVUDINE [Suspect]
     Indication: HIV INFECTION
  3. LAMIVUDINE [Suspect]
     Indication: HIV INFECTION
  4. NELFINAVIR [Suspect]
     Indication: HIV INFECTION
  5. ZIDOVUDINE [Suspect]
     Indication: HIV INFECTION
  6. LOPINAVIR/RITONAVIR [Suspect]
     Indication: HIV INFECTION
  7. TRIMETHOPRIM-SULFAMETHOXAZOLE [Concomitant]
     Indication: INFECTION PROPHYLAXIS
  8. POLY-VI-SOL [Concomitant]

REACTIONS (15)
  - BACTERIAL INFECTION [None]
  - CLONUS [None]
  - DEVELOPMENTAL DELAY [None]
  - DRUG INEFFECTIVE [None]
  - GASTROOESOPHAGEAL REFLUX DISEASE [None]
  - HIV INFECTION [None]
  - HYPERTONIA [None]
  - HYPOGAMMAGLOBULINAEMIA [None]
  - IMMUNOLOGY TEST ABNORMAL [None]
  - NEONATAL DISORDER [None]
  - NEUTROPENIA [None]
  - PNEUMONIA [None]
  - THROMBOCYTOPENIA NEONATAL [None]
  - VOMITING [None]
  - WEIGHT GAIN POOR [None]
